FAERS Safety Report 13652002 (Version 1)
Quarter: 2017Q2

REPORT INFORMATION
  Report Type: Spontaneous
  Country: ES (occurrence: ES)
  Receive Date: 20170614
  Receipt Date: 20170614
  Transmission Date: 20170830
  Serious: Yes (Other)
  Sender: FDA-Public Use
  Company Number: ES-IMPAX LABORATORIES, INC-2017-IPXL-01808

PATIENT
  Age: 60 Year
  Sex: Male

DRUGS (4)
  1. CARBIDOPA-LEVODOPA ER [Suspect]
     Active Substance: CARBIDOPA\LEVODOPA
     Indication: PARKINSON^S DISEASE
     Dosage: 846 MG, DAILY
     Route: 050
  2. CARBIDOPA-LEVODOPA ER [Suspect]
     Active Substance: CARBIDOPA\LEVODOPA
     Dosage: ADMINISTRATION OF EXTRA DOSES
     Route: 050
  3. CARBIDOPA-LEVODOPA ER [Suspect]
     Active Substance: CARBIDOPA\LEVODOPA
     Dosage: DOWN-TITRATION
     Route: 050
  4. CARBIDOPA-LEVODOPA ER [Suspect]
     Active Substance: CARBIDOPA\LEVODOPA
     Dosage: UP-TITRATION OF THE MAINTENANCE DOSE
     Route: 050

REACTIONS (2)
  - Dyskinesia [Unknown]
  - Deep brain stimulation [Unknown]
